FAERS Safety Report 14612609 (Version 1)
Quarter: 2018Q1

REPORT INFORMATION
  Report Type: Spontaneous
  Country: JP (occurrence: JP)
  Receive Date: 20180308
  Receipt Date: 20180308
  Transmission Date: 20180509
  Serious: Yes (Other)
  Sender: FDA-Public Use
  Company Number: JP-VIFOR (INTERNATIONAL) INC.-VIT-2018-02312

PATIENT
  Age: 87 Year
  Sex: Female

DRUGS (2)
  1. MIRCERA [Suspect]
     Active Substance: METHOXY POLYETHYLENE GLYCOL-EPOETIN BETA
     Indication: NEPHROGENIC ANAEMIA
     Route: 058
     Dates: start: 2016
  2. FERROMIA [Concomitant]
     Active Substance: SODIUM FERROUS CITRATE
     Dosage: DOSAGE IS UNCERTAIN

REACTIONS (2)
  - Serum ferritin increased [Unknown]
  - Colon cancer [Not Recovered/Not Resolved]
